FAERS Safety Report 5163443-7 (Version None)
Quarter: 2006Q4

REPORT INFORMATION
  Report Type: 
  Country: None (occurrence: None)
  Receive Date: 20061121
  Receipt Date: 20061108
  Transmission Date: 20070319
  Serious: Yes (Other)
  Sender: FDA-Public Use
  Company Number: 2006138574

PATIENT
  Age: 11 Year
  Sex: Female

DRUGS (1)
  1. PURELL [Suspect]
     Indication: EUPHORIC MOOD
     Dosage: INHALATION
     Route: 055

REACTIONS (2)
  - HYPERSOMNIA [None]
  - INTENTIONAL DRUG MISUSE [None]
